FAERS Safety Report 7399062-1 (Version None)
Quarter: 2011Q1

REPORT INFORMATION
  Report Type: 
  Country: None (occurrence: None)
  Receive Date: 20110328
  Receipt Date: 20110317
  Transmission Date: 20110831
  Serious: Yes (Other)
  Sender: FDA-Public Use
  Company Number: PI-05476

PATIENT
  Age: 21 Year
  Sex: Female

DRUGS (2)
  1. CHLORAPREP (2%CHG/70%IPA) WITH TINT (FD+C YELLOW #6) [Suspect]
     Indication: PREOPERATIVE CARE
     Dosage: 10.5ML, TWICE, TOPICAL
     Route: 061
     Dates: start: 20110317
  2. LIDOCAINE [Concomitant]

REACTIONS (4)
  - SWELLING FACE [None]
  - MENINGITIS [None]
  - OEDEMA MOUTH [None]
  - HEART RATE INCREASED [None]
